FAERS Safety Report 8962111 (Version 2)
Quarter: 2012Q4

REPORT INFORMATION
  Report Type: 
  Country: US (occurrence: US)
  Receive Date: 20121212
  Receipt Date: 20121228
  Transmission Date: 20130627
  Serious: Yes (Other)
  Sender: FDA-Public Use
  Company Number: US-SANOFI-AVENTIS-2012SA089511

PATIENT
  Age: 63 Year
  Sex: Female
  Weight: 56.81 kg

DRUGS (3)
  1. APIDRA [Suspect]
     Indication: TYPE I DIABETES MELLITUS
     Dosage: 2-10 units depending on blood sugar
     Route: 058
     Dates: start: 20120401
  2. INSULIN DETEMIR [Suspect]
     Route: 065
  3. LEVOTHYROXINE [Concomitant]
     Indication: HYPOTHYROIDISM
     Dosage: 137 and 25 mcg each morning

REACTIONS (3)
  - Fall [Unknown]
  - Foot fracture [Unknown]
  - Concussion [Unknown]
